FAERS Safety Report 12225780 (Version 1)
Quarter: 2016Q1

REPORT INFORMATION
  Report Type: Spontaneous
  Country: US (occurrence: None)
  Receive Date: 20160330
  Receipt Date: 20160330
  Transmission Date: 20160526
  Serious: No
  Sender: FDA-Public Use
  Company Number: None

PATIENT
  Age: 64 Year
  Sex: Female

DRUGS (2)
  1. TRULICITY [Suspect]
     Active Substance: DULAGLUTIDE
  2. PREDNISONE. [Suspect]
     Active Substance: PREDNISONE

REACTIONS (3)
  - Glycosylated haemoglobin increased [None]
  - Blood glucose increased [None]
  - Multiple allergies [None]
